FAERS Safety Report 6311948-5 (Version None)
Quarter: 2009Q3

REPORT INFORMATION
  Report Type: 
  Country: None (occurrence: None)
  Receive Date: 20090817
  Receipt Date: 20080708
  Transmission Date: 20100115
  Serious: Yes (Other)
  Sender: FDA-Public Use
  Company Number: US-BRISTOL-MYERS SQUIBB COMPANY-14255228

PATIENT
  Sex: Female

DRUGS (3)
  1. ESTRACE [Suspect]
     Indication: HORMONE REPLACEMENT THERAPY
     Dosage: CONTINUED THROUGH FEB2001.
     Dates: start: 19930101, end: 20070101
  2. PROVERA [Suspect]
     Indication: HORMONE REPLACEMENT THERAPY
     Dosage: CONTINUED THROUGH FEB2001.
     Dates: start: 19930101, end: 20070101
  3. PREMPRO [Suspect]
     Indication: HORMONE REPLACEMENT THERAPY
     Dosage: CONTINUED THROUGH FEB2001.
     Dates: start: 19930101, end: 20070101

REACTIONS (1)
  - BREAST CANCER [None]
